FAERS Safety Report 8008436-7 (Version None)
Quarter: 2011Q4

REPORT INFORMATION
  Report Type: 
  Country: None (occurrence: None)
  Receive Date: 20111227
  Receipt Date: 20111214
  Transmission Date: 20120403
  Serious: Yes (Other)
  Sender: FDA-Public Use
  Company Number: DE-ROCHE-1005822

PATIENT
  Sex: Male
  Weight: 58 kg

DRUGS (2)
  1. ENALAPRIL MALEATE [Concomitant]
  2. MIRCERA [Suspect]
     Indication: NEPHROGENIC ANAEMIA
     Route: 042

REACTIONS (2)
  - HAEMOGLOBIN DECREASED [None]
  - INFECTION [None]
